FAERS Safety Report 8848555 (Version 1)
Quarter: 2012Q4

REPORT INFORMATION
  Report Type: 
  Country: US (occurrence: US)
  Receive Date: 20121018
  Receipt Date: 20121018
  Transmission Date: 20130627
  Serious: Yes (Hospitalization)
  Sender: FDA-Public Use
  Company Number: US-GLAXOSMITHKLINE-A0997006A

PATIENT
  Age: 50 Year
  Sex: Female

DRUGS (5)
  1. ADVAIR [Suspect]
     Indication: ASTHMA
     Dosage: 1PUFF Twice per day
     Route: 055
     Dates: start: 2006, end: 200610
  2. ALBUTEROL [Concomitant]
     Route: 055
  3. NEBULIZER [Concomitant]
  4. ANTIDEPRESSANT (UNSPECIFIED) [Concomitant]
  5. WELLBUTRIN [Concomitant]

REACTIONS (5)
  - Pneumonia [Recovered/Resolved]
  - Pneumothorax [Recovered/Resolved]
  - Fatigue [Recovered/Resolved]
  - Insomnia [Recovered/Resolved]
  - Sleep apnoea syndrome [Recovered/Resolved]
